FAERS Safety Report 23603521 (Version 1)
Quarter: 2024Q1

REPORT INFORMATION
  Report Type: Report from Study
  Country: DE (occurrence: DE)
  Receive Date: 20240307
  Receipt Date: 20240307
  Transmission Date: 20240409
  Serious: Yes (Hospitalization)
  Sender: FDA-Public Use
  Company Number: DE-ABBVIE-5647537

PATIENT
  Age: 37 Year
  Sex: Female
  Weight: 82 kg

DRUGS (6)
  1. SKYRIZI [Suspect]
     Active Substance: RISANKIZUMAB-RZAA
     Indication: Psoriasis
     Route: 058
     Dates: start: 20220607
  2. Novalgin [Concomitant]
     Indication: Pain
     Route: 048
     Dates: start: 202302
  3. CANDEREL [Concomitant]
     Indication: Hypertension
     Dosage: CANDEROL
     Route: 048
     Dates: start: 202301
  4. AMLODIPINE BESYLATE [Concomitant]
     Active Substance: AMLODIPINE BESYLATE
     Indication: Hypertension
     Route: 048
     Dates: start: 202209
  5. VITAMIN B COMPLEX [Concomitant]
     Active Substance: CYANOCOBALAMIN\DEXPANTHENOL\NIACINAMIDE\PYRIDOXINE HYDROCHLORIDE\RIBOFLAVIN 5^-PHOSPHATE SODIUM\THIA
     Indication: Pain
     Route: 048
     Dates: start: 202302
  6. PROCAINE [Concomitant]
     Active Substance: PROCAINE
     Indication: Pain
     Route: 042
     Dates: start: 202302, end: 202302

REACTIONS (9)
  - Cervicobrachial syndrome [Recovered/Resolved]
  - Paraesthesia [Unknown]
  - Myosclerosis [Recovered/Resolved]
  - Spinal osteoarthritis [Recovered/Resolved]
  - Cervical radiculopathy [Recovered/Resolved]
  - Hypoaesthesia [Unknown]
  - Back pain [Unknown]
  - Bone pain [Unknown]
  - Spinal pain [Unknown]

NARRATIVE: CASE EVENT DATE: 20230209
